FAERS Safety Report 9121469 (Version 1)
Quarter: 2013Q1

REPORT INFORMATION
  Report Type: Spontaneous
  Country: US (occurrence: US)
  Receive Date: 20130108
  Receipt Date: 20130108
  Transmission Date: 20140127
  Serious: Yes (Other)
  Sender: FDA-Public Use
  Company Number: US-RB-048034-12

PATIENT
  Age: 51 Year
  Sex: Female

DRUGS (3)
  1. MUCINEX FAST-MAX SEVERE CONGESTION AND COUGH [Suspect]
     Indication: PRODUCT USED FOR UNKNOWN INDICATION
     Dosage: TOOK 1 TABLET THEN 1.5 HOURS LATER TOOK ANOTHER.;
     Route: 048
     Dates: start: 20121219
  2. MUCINEX FAST-MAX SEVERE CONGESTION AND COUGH [Suspect]
  3. MUCINEX FAST-MAX SEVERE CONGESTION AND COUGH [Suspect]

REACTIONS (6)
  - Depression [Recovered/Resolved]
  - Sensation of heaviness [Recovered/Resolved]
  - Hypersomnia [Recovered/Resolved]
  - Sinus headache [Recovered/Resolved]
  - Malaise [Recovered/Resolved]
  - Inappropriate schedule of drug administration [Recovered/Resolved]
